FAERS Safety Report 24060400 (Version 3)
Quarter: 2025Q1

REPORT INFORMATION
  Report Type: Spontaneous
  Country: US (occurrence: US)
  Receive Date: 20240708
  Receipt Date: 20250103
  Transmission Date: 20250409
  Serious: No
  Sender: ROCHE
  Company Number: US-ROCHE-10000018871

PATIENT
  Age: 54 Year
  Sex: Female

DRUGS (2)
  1. XOLAIR [Suspect]
     Active Substance: OMALIZUMAB
     Indication: Urticaria
     Dosage: XOLAIR AUTO 300MG/2ML
     Route: 058
  2. XOLAIR [Suspect]
     Active Substance: OMALIZUMAB
     Dosage: STRENGTH: 150MG/ML
     Route: 058

REACTIONS (3)
  - Off label use [Unknown]
  - No adverse event [Unknown]
  - Off label use [Unknown]
